FAERS Safety Report 4524636-2 (Version None)
Quarter: 2004Q4

REPORT INFORMATION
  Report Type: 
  Country: None (occurrence: None)
  Receive Date: 20041117
  Receipt Date: 20030723
  Transmission Date: 20050328
  Serious: Yes (Other)
  Sender: FDA-Public Use
  Company Number: C2003-1870.01

PATIENT
  Age: 56 Year
  Sex: Male

DRUGS (6)
  1. CLOZAPINE [Suspect]
     Dosage: 25MG Q HS, ORAL
     Route: 048
     Dates: start: 20030621, end: 20030722
  2. CLOZAPINE [Suspect]
     Dosage: 25MG Q HS, ORAL
     Route: 048
     Dates: start: 20030726, end: 20030728
  3. CLOZAPINE [Suspect]
     Dosage: 200MG Q HS, ORAL
     Route: 048
     Dates: start: 20030621, end: 20030722
  4. LITHIUM [Concomitant]
  5. LORAZEPAM [Concomitant]
  6. BUPROPION HCL [Concomitant]

REACTIONS (2)
  - LEUKOPENIA [None]
  - NEUTROPHIL COUNT DECREASED [None]
